FAERS Safety Report 7502122-5 (Version None)
Quarter: 2011Q2

REPORT INFORMATION
  Report Type: 
  Country: None (occurrence: None)
  Receive Date: 20110523
  Receipt Date: 20110523
  Transmission Date: 20111010
  Serious: Yes (Hospitalization)
  Sender: FDA-Public Use
  Company Number: None

PATIENT
  Age: 65 Year
  Sex: Male
  Weight: 56 kg

DRUGS (1)
  1. AMBISOME [Suspect]
     Indication: CRYPTOCOCCOSIS
     Dosage: 280 MG Q24 HOURS IV
     Route: 042
     Dates: start: 20110519, end: 20110520

REACTIONS (3)
  - ABDOMINAL DISCOMFORT [None]
  - CHEST PAIN [None]
  - INFUSION RELATED REACTION [None]
